FAERS Safety Report 20525510 (Version 1)
Quarter: 2022Q1

REPORT INFORMATION
  Report Type: Spontaneous
  Country: US (occurrence: US)
  Receive Date: 20220228
  Receipt Date: 20220228
  Transmission Date: 20220424
  Serious: Yes (Hospitalization, Other)
  Sender: FDA-Public Use
  Company Number: US-WOCKHARDT BIO AG-2022WBA000023

PATIENT
  Age: 58 Year
  Sex: Male

DRUGS (3)
  1. LITHIUM HYDROXIDE [Suspect]
     Active Substance: LITHIUM HYDROXIDE
     Indication: Schizoaffective disorder
     Dosage: UNK
     Route: 065
  2. LITHIUM HYDROXIDE [Suspect]
     Active Substance: LITHIUM HYDROXIDE
     Dosage: 900 MILLIGRAM
     Route: 065
  3. RISPERIDONE [Concomitant]
     Active Substance: RISPERIDONE
     Indication: Schizoaffective disorder
     Dosage: 2 MILLIGRAM, QD
     Route: 065

REACTIONS (3)
  - Hyperparathyroidism [Recovered/Resolved]
  - Catatonia [Recovered/Resolved]
  - Hypercalcaemia [Recovered/Resolved]
